FAERS Safety Report 5100518-2 (Version None)
Quarter: 2006Q3

REPORT INFORMATION
  Report Type: 
  Country: None (occurrence: None)
  Receive Date: 20060907
  Receipt Date: 20060907
  Transmission Date: 20061208
  Serious: Yes (Death, Life-Threatening, Hospitalization)
  Sender: FDA-Public Use
  Company Number: None

PATIENT
  Age: 75 Year
  Sex: Male

DRUGS (10)
  1. HYDROXYUREA [Suspect]
     Indication: ACUTE MYELOID LEUKAEMIA
     Dosage: 2 GM PO BID
     Route: 048
     Dates: start: 20060706, end: 20060711
  2. ACCU-CHECK COMFORT CV-GLUCOSE- TEST STRIP [Concomitant]
  3. ALLOPURINOL [Concomitant]
  4. ATENOLOL [Concomitant]
  5. CLINDAMYCIN HCL [Concomitant]
  6. ENALAPRIL MALEATE [Concomitant]
  7. FELODIPINE [Concomitant]
  8. HYDROCHLOROTHIAZIDE [Concomitant]
  9. HYDROXYUREA [Concomitant]
  10. MEGESTROL ACETATE [Concomitant]

REACTIONS (15)
  - ACUTE MYELOID LEUKAEMIA [None]
  - ARTHRALGIA [None]
  - ASTHENIA [None]
  - BLOOD CREATININE INCREASED [None]
  - CELLULITIS [None]
  - CHILLS [None]
  - DEHYDRATION [None]
  - FATIGUE [None]
  - GASTROINTESTINAL HAEMORRHAGE [None]
  - HYPOTENSION [None]
  - MALIGNANT NEOPLASM PROGRESSION [None]
  - NAUSEA [None]
  - PANCYTOPENIA [None]
  - PYREXIA [None]
  - TENDERNESS [None]
